FAERS Safety Report 25372872 (Version 1)
Quarter: 2025Q2

REPORT INFORMATION
  Report Type: Report from Study
  Country: US (occurrence: US)
  Receive Date: 20250529
  Receipt Date: 20250529
  Transmission Date: 20250716
  Serious: Yes (Hospitalization, Other)
  Sender: ABBVIE
  Company Number: US-ABBVIE-5787426

PATIENT
  Age: 70 Year
  Sex: Female
  Weight: 75 kg

DRUGS (1)
  1. HUMIRA [Suspect]
     Active Substance: ADALIMUMAB
     Indication: Psoriasis
     Dosage: FORM STRENGTH 40 MG, CITRATE FREE
     Route: 058
     Dates: start: 20211004

REACTIONS (15)
  - Coronary artery occlusion [Unknown]
  - Fall [Recovered/Resolved]
  - Myocardial infarction [Recovering/Resolving]
  - Accident [Recovering/Resolving]
  - Fall [Recovering/Resolving]
  - Back injury [Unknown]
  - Dizziness [Unknown]
  - Pain [Unknown]
  - Musculoskeletal chest pain [Unknown]
  - Mass [Unknown]
  - Dyspnoea [Unknown]
  - Pain in extremity [Unknown]
  - Chest injury [Unknown]
  - Joint injury [Unknown]
  - Limb injury [Unknown]

NARRATIVE: CASE EVENT DATE: 20230401
